FAERS Safety Report 12623926 (Version 1)
Quarter: 2016Q3

REPORT INFORMATION
  Report Type: Spontaneous
  Country: CN (occurrence: CN)
  Receive Date: 20160804
  Receipt Date: 20160804
  Transmission Date: 20161109
  Serious: Yes (Other)
  Sender: FDA-Public Use
  Company Number: CN-GILEAD-2016-0226431

PATIENT
  Age: 64 Year
  Sex: Male

DRUGS (5)
  1. ADEFOVIR DIPIVOXIL. [Suspect]
     Active Substance: ADEFOVIR DIPIVOXIL
     Indication: HEPATITIS B
     Dosage: 10 MG, QD
     Route: 065
  2. ADEFOVIR DIPIVOXIL. [Suspect]
     Active Substance: ADEFOVIR DIPIVOXIL
     Dosage: 10 MG, QD
     Route: 065
     Dates: start: 20141217
  3. SORAFENIB [Suspect]
     Active Substance: SORAFENIB
     Indication: HEPATIC CANCER
     Dosage: 0.4 MG, BID
     Route: 065
  4. SORAFENIB [Suspect]
     Active Substance: SORAFENIB
     Dosage: 0.6 MG, QD
     Route: 065
     Dates: start: 201408
  5. ENTECAVIR. [Concomitant]
     Active Substance: ENTECAVIR
     Indication: HEPATITIS B
     Dosage: 0.4 MG, BID

REACTIONS (5)
  - Back pain [Unknown]
  - Musculoskeletal discomfort [Unknown]
  - Osteomalacia [Unknown]
  - Hypophosphataemia [Recovered/Resolved]
  - Compression fracture [Unknown]

NARRATIVE: CASE EVENT DATE: 20150120
